FAERS Safety Report 10222629 (Version 1)
Quarter: 2014Q2

REPORT INFORMATION
  Report Type: Spontaneous
  Country: DE (occurrence: DE)
  Receive Date: 20140606
  Receipt Date: 20140606
  Transmission Date: 20141212
  Serious: Yes (Other)
  Sender: FDA-Public Use
  Company Number: DE-TEVA-486469GER

PATIENT
  Age: 30 Year
  Sex: Female

DRUGS (2)
  1. PANTOPRAZOL [Suspect]
     Indication: GASTRITIS
     Dosage: 40 MG EVERY SECOND DAY
     Route: 048
     Dates: start: 20121006, end: 20130717
  2. FOLIO FORTE [Concomitant]
     Indication: PROPHYLAXIS OF NEURAL TUBE DEFECT
     Dosage: .8 MILLIGRAM DAILY;
     Dates: start: 20121006, end: 20130717

REACTIONS (2)
  - Oligohydramnios [Unknown]
  - Placental insufficiency [Unknown]
